FAERS Safety Report 9696282 (Version 1)
Quarter: 2013Q4

REPORT INFORMATION
  Report Type: Spontaneous
  Country: FR (occurrence: None)
  Receive Date: 20131115
  Receipt Date: 20131115
  Transmission Date: 20140711
  Serious: Yes (Hospitalization, Other)
  Sender: FDA-Public Use
  Company Number: ADR-2013-02076

PATIENT
  Age: 54 Year
  Sex: Male

DRUGS (9)
  1. BACLOFEN [Suspect]
     Dosage: DAY
  2. SEROPLEX [Concomitant]
  3. TAHOR [Concomitant]
  4. CARDENSIEL [Concomitant]
  5. LASILIX [Concomitant]
  6. REVIA [Concomitant]
  7. AOTAL [Concomitant]
  8. VITAMIN B1 [Concomitant]
  9. B6 [Concomitant]

REACTIONS (20)
  - Agitation [None]
  - Blood pH decreased [None]
  - Bradypnoea [None]
  - Altered state of consciousness [None]
  - Cough [None]
  - Hyperproteinaemia [None]
  - Delirium [None]
  - Electroencephalogram abnormal [None]
  - Hypercapnia [None]
  - Muscle contractions involuntary [None]
  - Myoclonus [None]
  - Respiratory acidosis [None]
  - Respiratory depression [None]
  - Overdose [None]
  - Nervous system disorder [None]
  - Muscle contractions involuntary [None]
  - Blood creatinine increased [None]
  - Toxicity to various agents [None]
  - Depressed level of consciousness [None]
  - Hypoxia [None]
